FAERS Safety Report 25322060 (Version 8)
Quarter: 2025Q4

REPORT INFORMATION
  Report Type: Report from Study
  Country: CA (occurrence: CA)
  Receive Date: 20250516
  Receipt Date: 20251028
  Transmission Date: 20260118
  Serious: Yes (Other)
  Sender: CELLTRION
  Company Number: CA-CELLTRION INC.-2025CA014022

PATIENT

DRUGS (4)
  1. USTEKINUMAB [Suspect]
     Active Substance: USTEKINUMAB
     Indication: Crohn^s disease
     Dosage: 90 MG EVERY 8 WEEK(S)
     Route: 058
     Dates: start: 20250319
  2. USTEKINUMAB [Suspect]
     Active Substance: USTEKINUMAB
     Dosage: MAINTENANCE - 90 MG - SC (SUBCUTANEOUS) EVERY 8 WEEKS
     Route: 058
     Dates: start: 20250319
  3. USTEKINUMAB [Suspect]
     Active Substance: USTEKINUMAB
     Dosage: MAINTENANCE - 90 MG - SC (SUBCUTANEOUS) EVERY 8 WEEKS
     Route: 058
     Dates: start: 20250319
  4. USTEKINUMAB [Suspect]
     Active Substance: USTEKINUMAB
     Dosage: MAINTENANCE - 90 MG - SC (SUBCUTANEOUS) EVERY 8 WEEKS
     Route: 058
     Dates: start: 20250319

REACTIONS (11)
  - Flatulence [Not Recovered/Not Resolved]
  - Abdominal pain upper [Not Recovered/Not Resolved]
  - Malaise [Unknown]
  - Muscle spasms [Unknown]
  - Diarrhoea [Unknown]
  - Dizziness [Unknown]
  - Nausea [Unknown]
  - Vomiting [Unknown]
  - Product dose omission issue [Recovered/Resolved]
  - Intentional dose omission [Unknown]
  - Therapy interrupted [Unknown]

NARRATIVE: CASE EVENT DATE: 20250409
